FAERS Safety Report 9250569 (Version 1)
Quarter: 2013Q1

REPORT INFORMATION
  Report Type: Spontaneous
  Country: US (occurrence: None)
  Receive Date: 20130305
  Receipt Date: 20130305
  Transmission Date: 20140127
  Serious: Yes (Hospitalization)
  Sender: FDA-Public Use
  Company Number: 163-21880-12062573

PATIENT
  Age: 62 Year
  Sex: Male
  Weight: 70.76 kg

DRUGS (7)
  1. REVLIMID [Suspect]
     Indication: PLASMA CELL MYELOMA
     Dosage: 25 MG, 14 IN 21 D, PO
     Route: 048
     Dates: start: 20120509
  2. PROTONIX (UNKNOWN) [Concomitant]
  3. VELCADE [Concomitant]
     Dosage: 1 IN 1 WK, UNK
  4. ZOMETA (ZOLEDRONIC ACID) (UNKNOWN) [Concomitant]
     Dosage: 1 IN 6 WK, UNK
  5. DECADRON [Concomitant]
     Dosage: 40 MG, 1 IN 1 WK, UNK
  6. ACYCLOVIR (ACICLOVIR) (UNKNOWN) [Concomitant]
     Dosage: 400 MG, 1 IN 1 D, UNK
  7. ASPIRIN (ACETYLSALICYLIC ACID) (UNKNOWN) (ACETYLSALICYLIC ACID) [Concomitant]
     Dosage: 1 IN 1 D, UNK

REACTIONS (4)
  - Loss of consciousness [None]
  - Constipation [None]
  - Weight decreased [None]
  - Fluid intake reduced [None]
